FAERS Safety Report 23582517 (Version 1)
Quarter: 2024Q1

REPORT INFORMATION
  Report Type: Report from Study
  Country: GR (occurrence: GR)
  Receive Date: 20240229
  Receipt Date: 20240229
  Transmission Date: 20240410
  Serious: Yes (Other)
  Sender: FDA-Public Use
  Company Number: GR-ABBVIE-5655932

PATIENT
  Age: 80 Year
  Sex: Female
  Weight: 67 kg

DRUGS (7)
  1. CARBIDOPA\LEVODOPA [Suspect]
     Active Substance: CARBIDOPA\LEVODOPA
     Indication: Parkinson^s disease
     Dosage: MORNING DOSE: 10.8ML; CONTINUOUS RATE: 2.2ML/H; EXTRA DOSE: 1.0ML
     Route: 050
     Dates: start: 20201207
  2. CARBIDOPA\LEVODOPA [Suspect]
     Active Substance: CARBIDOPA\LEVODOPA
  3. RESCUE REMEDY [Concomitant]
     Active Substance: HOMEOPATHICS
     Indication: Depression
     Dosage: FREQUENCY TEXT: PER DAY?DROPPER
     Route: 048
  4. RACTILEN [Concomitant]
     Indication: Product used for unknown indication
     Route: 048
  5. B-MAG [Concomitant]
     Indication: Product used for unknown indication
     Route: 048
  6. DOZILAX [Concomitant]
     Indication: Product used for unknown indication
     Dosage: FORM STRENGTH: 10 MG
     Route: 048
  7. FORTIUS [Concomitant]
     Indication: Product used for unknown indication
     Dosage: FOOD SUPPLEMENT MAG+
     Route: 048

REACTIONS (1)
  - Cataract [Recovered/Resolved]
